FAERS Safety Report 5854082-0 (Version None)
Quarter: 2008Q3

REPORT INFORMATION
  Report Type: 
  Country: None (occurrence: None)
  Receive Date: 20080822
  Receipt Date: 20080820
  Transmission Date: 20090109
  Serious: Yes (Hospitalization)
  Sender: FDA-Public Use
  Company Number: DE-BRISTOL-MYERS SQUIBB COMPANY-14309603

PATIENT
  Age: 64 Year
  Sex: Female
  Weight: 60 kg

DRUGS (8)
  1. TAXOL [Suspect]
     Indication: BREAST CANCER
     Dates: start: 20080813, end: 20080813
  2. CYCLOPHOSPHAMIDE [Suspect]
     Indication: BREAST CANCER
     Dates: start: 20080514, end: 20080625
  3. XELODA [Suspect]
     Indication: BREAST CANCER
     Dosage: FREQ:ONCE A DAY FOR TWO WEEKS EVERY THREE WEEKS.
     Dates: start: 20080730, end: 20080812
  4. EPIRUBICIN [Suspect]
     Indication: BREAST CANCER
     Dates: start: 20080514, end: 20080625
  5. FORTECORTIN [Concomitant]
     Dates: start: 20080813, end: 20080815
  6. METOCLOPRAMIDE [Concomitant]
     Dates: start: 20080813, end: 20080815
  7. RANITIDINE HCL [Concomitant]
     Dates: start: 20080813, end: 20080815
  8. DARBEPOETIN ALFA [Concomitant]
     Dosage: 1DOSAGE FORM=150 UNITS NOT SPECIFIED.
     Dates: start: 20080819, end: 20080819

REACTIONS (2)
  - MUCOSAL INFLAMMATION [None]
  - PALMAR-PLANTAR ERYTHRODYSAESTHESIA SYNDROME [None]
